FAERS Safety Report 24623802 (Version 2)
Quarter: 2025Q1

REPORT INFORMATION
  Report Type: Spontaneous
  Country: ES (occurrence: ES)
  Receive Date: 20241115
  Receipt Date: 20250317
  Transmission Date: 20250409
  Serious: Yes (Death, Congenital Anomaly)
  Sender: UCB
  Company Number: None

PATIENT
  Sex: Female

DRUGS (1)
  1. CIMZIA [Suspect]
     Active Substance: CERTOLIZUMAB PEGOL
     Indication: Axial spondyloarthritis
     Dosage: 200 MILLIGRAM, WEEKLY (QW)
     Route: 064
     Dates: start: 20211001, end: 20241016

REACTIONS (3)
  - Congenital absence of cranial vault [Fatal]
  - Turner^s syndrome [Fatal]
  - Maternal exposure during pregnancy [Fatal]

NARRATIVE: CASE EVENT DATE: 20240423
